FAERS Safety Report 9414468 (Version 2)
Quarter: 2013Q3

REPORT INFORMATION
  Report Type: Spontaneous
  Country: FR (occurrence: FR)
  Receive Date: 20130723
  Receipt Date: 20130805
  Transmission Date: 20140515
  Serious: Yes (Hospitalization)
  Sender: FDA-Public Use
  Company Number: FR-GLAXOSMITHKLINE-B0908577A

PATIENT
  Age: 79 Year
  Sex: Female

DRUGS (8)
  1. ARIXTRA [Suspect]
     Indication: THROMBOSIS PROPHYLAXIS
     Dosage: 2.5MG PER DAY
     Route: 058
     Dates: start: 20130418, end: 20130430
  2. KARDEGIC [Suspect]
     Indication: THROMBOSIS PROPHYLAXIS
     Dosage: 75MG PER DAY
     Route: 048
  3. RAMIPRIL [Suspect]
     Indication: HYPERTENSION
     Dosage: 7.5MG PER DAY
     Route: 048
  4. AVLOCARDYL [Suspect]
     Indication: HYPERTENSION
     Dosage: 10MG TWICE PER DAY
     Route: 048
  5. LEVOTHYROX [Suspect]
     Indication: HYPOTHYROIDISM
     Dosage: 75MCG PER DAY
     Route: 048
  6. TAHOR [Suspect]
     Indication: THROMBOSIS PROPHYLAXIS
     Dosage: 20MG PER DAY
     Route: 048
  7. NAFTIDROFURYL [Suspect]
     Indication: PERIPHERAL ARTERIAL OCCLUSIVE DISEASE
     Dosage: 200MG THREE TIMES PER DAY
     Route: 048
  8. DAFALGAN [Suspect]
     Indication: PAIN
     Dosage: 1G THREE TIMES PER DAY
     Route: 048

REACTIONS (4)
  - Abdominal wall haematoma [Recovered/Resolved]
  - Abdominal pain [Recovering/Resolving]
  - Red blood cell count decreased [Recovered/Resolved]
  - Hypotension [Recovered/Resolved]
